FAERS Safety Report 4959699-3 (Version None)
Quarter: 2006Q1

REPORT INFORMATION
  Report Type: 
  Country: None (occurrence: None)
  Receive Date: 20060327
  Receipt Date: 20060320
  Transmission Date: 20060701
  Serious: Yes (Hospitalization)
  Sender: FDA-Public Use
  Company Number: 2006-01050

PATIENT
  Age: 49 Year
  Sex: Male

DRUGS (8)
  1. PREDNISOLONE [Suspect]
     Indication: GRAFT VERSUS HOST DISEASE
     Dosage: 16 MG, DAILY, ORAL
     Route: 048
  2. POSACONAZOLE [Suspect]
     Indication: FUNGAL INFECTION
     Dosage: 400 MG, DAILY, ORAL
     Route: 048
  3. MYCOPHENOLATE MOFETIL [Suspect]
     Indication: GRAFT VERSUS HOST DISEASE
     Dosage: 1 G, BID, ORAL
     Route: 048
  4. PENICILLIN V [Concomitant]
  5. FRUSEMIDE [Concomitant]
  6. SIMVASTATIN [Concomitant]
  7. MIRTAZAPINE [Concomitant]
  8. SEPTRA [Concomitant]

REACTIONS (7)
  - ABDOMINAL PAIN [None]
  - BACTERIAL INFECTION [None]
  - HEPATIC ENZYME INCREASED [None]
  - NAUSEA [None]
  - RENAL IMPAIRMENT [None]
  - VARICELLA [None]
  - VOMITING [None]
